FAERS Safety Report 25523355 (Version 1)
Quarter: 2025Q3

REPORT INFORMATION
  Report Type: Spontaneous
  Country: CN (occurrence: CN)
  Receive Date: 20250707
  Receipt Date: 20250707
  Transmission Date: 20251021
  Serious: Yes (Hospitalization)
  Sender: RIGEL PHARMACEUTICALS
  Company Number: CN-RIGEL Pharmaceuticals, INC-20250700038

PATIENT
  Age: 43 Year
  Sex: Female
  Weight: 60 kg

DRUGS (2)
  1. GAVRETO [Suspect]
     Active Substance: PRALSETINIB
     Indication: Lung squamous cell carcinoma metastatic
     Dosage: 400 MILLIGRAM, QD
     Route: 048
     Dates: start: 20250523, end: 20250617
  2. ENDOSTATIN [Suspect]
     Active Substance: ENDOSTATIN
     Indication: Lung squamous cell carcinoma metastatic
     Dosage: 210 MILLIGRAM, Q3W
     Route: 042
     Dates: start: 20250523, end: 20250524

REACTIONS (1)
  - Myelosuppression [Recovering/Resolving]

NARRATIVE: CASE EVENT DATE: 20250617
